FAERS Safety Report 9517254 (Version 2)
Quarter: 2013Q4

REPORT INFORMATION
  Report Type: Spontaneous
  Country: IT (occurrence: IT)
  Receive Date: 20130911
  Receipt Date: 20131022
  Transmission Date: 20140711
  Serious: Yes (Hospitalization)
  Sender: FDA-Public Use
  Company Number: IT-BAYER-2013-109725

PATIENT
  Age: 78 Year
  Sex: Male

DRUGS (7)
  1. CARDIOASPIRIN [Suspect]
     Indication: THROMBOSIS PROPHYLAXIS
     Dosage: DAILY DOSE 100 MG
     Route: 048
     Dates: start: 20110101
  2. ARIXTRA [Suspect]
     Indication: ATRIAL FIBRILLATION
     Dosage: DAILY DOSE 1 DF
     Route: 058
     Dates: start: 20120101, end: 20130817
  3. CRESTOR [Concomitant]
  4. LOPRESOR [Concomitant]
  5. NORVASC [Concomitant]
  6. PARIET [Concomitant]
  7. TRIATEC [Concomitant]
     Indication: HYPERTENSIVE HEART DISEASE

REACTIONS (4)
  - Anaemia [Recovering/Resolving]
  - Intra-abdominal haematoma [Recovering/Resolving]
  - Thrombocytopenia [Recovering/Resolving]
  - Labelled drug-drug interaction medication error [None]
